FAERS Safety Report 4279347-8 (Version None)
Quarter: 2004Q1

REPORT INFORMATION
  Report Type: 
  Country: None (occurrence: None)
  Receive Date: 20040126
  Receipt Date: 20040126
  Transmission Date: 20041129
  Serious: Yes (Other)
  Sender: FDA-Public Use
  Company Number: None

PATIENT
  Sex: Male
  Weight: 77.1115 kg

DRUGS (7)
  1. ZETIA [Suspect]
     Indication: HYPERCHOLESTEROLAEMIA
     Dosage: 1 DAILY ORAL
     Route: 048
     Dates: start: 20030618, end: 20030730
  2. ZETIA [Suspect]
     Indication: HYPERCHOLESTEROLAEMIA
     Dosage: 1 DAILY ORAL
     Route: 048
     Dates: start: 20031218, end: 20040115
  3. LISINOPRIL [Concomitant]
  4. ASPIRIN [Concomitant]
  5. SAW PALMETTO [Concomitant]
  6. MACRODANTIN [Concomitant]
  7. NEXXIUM [Concomitant]

REACTIONS (4)
  - AMNESIA [None]
  - DISTURBANCE IN ATTENTION [None]
  - FATIGUE [None]
  - INSOMNIA [None]
